FAERS Safety Report 7434919-4 (Version None)
Quarter: 2011Q2

REPORT INFORMATION
  Report Type: 
  Country: None (occurrence: None)
  Receive Date: 20110415
  Receipt Date: 20110404
  Transmission Date: 20111010
  Serious: Yes (Death, Life-Threatening, Other)
  Sender: FDA-Public Use
  Company Number: 2008-00980

PATIENT
  Age: 58 Year
  Sex: Male
  Weight: 87 kg

DRUGS (27)
  1. LEVOFLOXACIN [Concomitant]
  2. LENDORM [Concomitant]
  3. NEUROTROPIN (ORGAN LUSATE, STANDARDIZED) [Concomitant]
  4. GLYSENNID [Concomitant]
  5. LAXOBERON (SODIUM PICOSULFATE) [Concomitant]
  6. LIORESAL [Concomitant]
  7. OXYCODONE HCL [Concomitant]
  8. MAXIPIME [Concomitant]
  9. LUPRAC (TORASEMIDE) [Concomitant]
  10. HYDROCORTISONE SODIUM SUCCINATE [Concomitant]
  11. MS REISHIPPU (CAMPHOR, MENTHOL, METHYL SALICYLATE) [Concomitant]
  12. CORTRIL [Concomitant]
  13. SLOW-K [Concomitant]
  14. VELCADE [Suspect]
     Indication: MULTIPLE MYELOMA
     Dosage: 2.10, 2.5, 1.3  MG, INTRAVENOUS
     Route: 042
     Dates: start: 20071113, end: 20071123
  15. VELCADE [Suspect]
     Indication: MULTIPLE MYELOMA
     Dosage: 2.10, 2.5, 1.3  MG, INTRAVENOUS
     Route: 042
     Dates: start: 20071217, end: 20071225
  16. VELCADE [Suspect]
     Indication: MULTIPLE MYELOMA
     Dosage: 2.10, 2.5, 1.3  MG, INTRAVENOUS
     Route: 042
     Dates: start: 20071212, end: 20071212
  17. RIVOTRIL (CLONAZEPAM) [Concomitant]
  18. DEXAMETHASONE [Concomitant]
  19. GABAPENTIN [Concomitant]
  20. AZUNOL # 1 (AZULENE) [Concomitant]
  21. DEXAMETHASONE SODIUM PHOSPHATE [Suspect]
     Indication: MULTIPLE MYELOMA
     Dosage: 20 MG, INTRAVENOUS
     Route: 042
     Dates: start: 20071113, end: 20071202
  22. OMEPRAZOLE [Concomitant]
  23. ITRACONAZOLE [Suspect]
     Indication: PROPHYLAXIS
     Dosage: 200 MG, ORAL
     Route: 048
     Dates: end: 20080205
  24. ACETAMINOPHEN [Suspect]
     Indication: PROPHYLAXIS
     Dosage: 200 MG, ORAL
     Route: 048
     Dates: start: 20071228
  25. OXYCONTIN [Concomitant]
  26. BIOFERMIN (STREPTOCOCCUS FAECALIS, LACTOBACILLUS ACIDOPHILUS, BACILLUS [Concomitant]
  27. ALLOPURINOL [Concomitant]

REACTIONS (5)
  - PYREXIA [None]
  - CELLULITIS [None]
  - PLATELET COUNT DECREASED [None]
  - IMMUNODEFICIENCY [None]
  - PNEUMONIA BACTERIAL [None]
